FAERS Safety Report 16724826 (Version 1)
Quarter: 2019Q3

REPORT INFORMATION
  Report Type: Spontaneous
  Country: DE (occurrence: DE)
  Receive Date: 20190821
  Receipt Date: 20190821
  Transmission Date: 20191005
  Serious: Yes (Hospitalization)
  Sender: FDA-Public Use
  Company Number: DE-LP PHARMA-2019PRN00764

PATIENT
  Age: 58 Year
  Sex: Female

DRUGS (2)
  1. CLONIDINE HYDROCHLORIDE. [Suspect]
     Active Substance: CLONIDINE HYDROCHLORIDE
     Indication: NEURALGIA
     Dosage: 22343 ?G, DAILY DOSE
     Route: 037
  2. MORPHINE [Suspect]
     Active Substance: MORPHINE
     Indication: NEURALGIA
     Dosage: 53624 MG, DAILY DOSE
     Route: 037

REACTIONS (5)
  - Myoclonus [Recovered/Resolved]
  - Drug withdrawal syndrome [Recovered/Resolved]
  - Depressed level of consciousness [Recovered/Resolved]
  - Hypertensive crisis [Recovered/Resolved]
  - Retrograde amnesia [Recovered/Resolved]
